FAERS Safety Report 21960799 (Version 2)
Quarter: 2024Q1

REPORT INFORMATION
  Report Type: Spontaneous
  Country: US (occurrence: US)
  Receive Date: 20230207
  Receipt Date: 20240307
  Transmission Date: 20240410
  Serious: Yes (Hospitalization, Other)
  Sender: FDA-Public Use
  Company Number: US-BRISTOL-MYERS SQUIBB COMPANY-2023-016444

PATIENT
  Age: 54 Year
  Sex: Female

DRUGS (1)
  1. ZEPOSIA [Suspect]
     Active Substance: OZANIMOD HYDROCHLORIDE
     Indication: Multiple sclerosis
     Dosage: DAILY
     Route: 048
     Dates: start: 202301

REACTIONS (5)
  - Speech disorder [Unknown]
  - Visual impairment [Unknown]
  - Loss of consciousness [Unknown]
  - Cerebrovascular accident [Unknown]
  - Multiple sclerosis relapse [Recovered/Resolved]
